FAERS Safety Report 13688781 (Version 1)
Quarter: 2017Q2

REPORT INFORMATION
  Report Type: Spontaneous
  Country: US (occurrence: US)
  Receive Date: 20170623
  Receipt Date: 20170623
  Transmission Date: 20170830
  Serious: Yes (Other)
  Sender: FDA-Public Use
  Company Number: None

PATIENT
  Age: 74 Year
  Sex: Male
  Weight: 63 kg

DRUGS (4)
  1. DARZALEX [Suspect]
     Active Substance: DARATUMUMAB
     Indication: PLASMA CELL MYELOMA
     Dosage: ?          OTHER FREQUENCY:WEEKLY;?
     Route: 042
     Dates: start: 20170411, end: 20170425
  2. LISINIPRIL [Concomitant]
     Active Substance: LISINOPRIL
  3. VELCADE [Concomitant]
     Active Substance: BORTEZOMIB
  4. LEVOTHYROXINE. [Concomitant]
     Active Substance: LEVOTHYROXINE

REACTIONS (4)
  - Oedema peripheral [None]
  - Haemoglobin decreased [None]
  - Platelet count decreased [None]
  - Face oedema [None]

NARRATIVE: CASE EVENT DATE: 20170427
